FAERS Safety Report 8546803-3 (Version None)
Quarter: 2012Q3

REPORT INFORMATION
  Report Type: 
  Country: None (occurrence: None)
  Receive Date: 20120727
  Receipt Date: 20120228
  Transmission Date: 20120928
  Serious: No
  Sender: FDA-Public Use
  Company Number: US-ASTRAZENECA-2012SE08859

PATIENT
  Age: 56 Year
  Sex: Female
  Weight: 79.8 kg

DRUGS (8)
  1. CLONAZEPAM [Concomitant]
     Indication: ANXIETY
  2. SEROQUEL [Suspect]
     Route: 048
  3. ADVAIR DISKUS 100/50 [Concomitant]
  4. SEROQUEL [Suspect]
     Route: 048
     Dates: start: 20120126, end: 20120216
  5. SEROQUEL [Suspect]
     Indication: BIPOLAR DISORDER
     Route: 048
  6. SEROQUEL [Suspect]
     Route: 048
  7. CYMBALTA [Concomitant]
     Indication: DEPRESSION
  8. MORPHINE SULFATE [Concomitant]

REACTIONS (2)
  - TONGUE DRY [None]
  - TONGUE HAEMORRHAGE [None]
